FAERS Safety Report 8549991-8 (Version None)
Quarter: 2012Q3

REPORT INFORMATION
  Report Type: 
  Country: None (occurrence: None)
  Receive Date: 20120718
  Receipt Date: 20120703
  Transmission Date: 20120928
  Serious: Yes (Other)
  Sender: FDA-Public Use
  Company Number: 2011MA002528

PATIENT
  Sex: Male

DRUGS (8)
  1. FLUTICASONE FUROATE [Concomitant]
  2. AMOXICILLIN [Concomitant]
  3. CARISOPRODOL [Concomitant]
  4. HYDROCODONE [Concomitant]
  5. ALPRAZOLAM [Concomitant]
  6. METOCLOPRAMIDE [Suspect]
     Dosage: 10 MG; PO
     Route: 048
     Dates: start: 20000101, end: 20100701
  7. CLARITHROMYCIN [Concomitant]
  8. ZOLPIDEM [Concomitant]

REACTIONS (9)
  - INJURY [None]
  - AKATHISIA [None]
  - TREMOR [None]
  - EMOTIONAL DISORDER [None]
  - EXTRAPYRAMIDAL DISORDER [None]
  - ECONOMIC PROBLEM [None]
  - TARDIVE DYSKINESIA [None]
  - DYSTONIA [None]
  - MOVEMENT DISORDER [None]
